FAERS Safety Report 19186119 (Version 1)
Quarter: 2021Q2

REPORT INFORMATION
  Report Type: Spontaneous
  Country: BR (occurrence: BR)
  Receive Date: 20210427
  Receipt Date: 20210427
  Transmission Date: 20210717
  Serious: Yes (Hospitalization)
  Sender: FDA-Public Use
  Company Number: BR-NOVOPROD-806119

PATIENT
  Age: 16 Year
  Sex: Female
  Weight: 57.6 kg

DRUGS (6)
  1. TRESIBA [Suspect]
     Active Substance: INSULIN DEGLUDEC
     Indication: PRODUCT USED FOR UNKNOWN INDICATION
     Dosage: 32 IU, QD
     Route: 065
     Dates: start: 20190126
  2. APIDRA [Suspect]
     Active Substance: INSULIN GLULISINE
     Dosage: 33 IU, QD
     Route: 065
     Dates: start: 20190126
  3. TRESIBA [Suspect]
     Active Substance: INSULIN DEGLUDEC
     Dosage: 45 IU, QD
     Route: 065
  4. APIDRA [Suspect]
     Active Substance: INSULIN GLULISINE
     Dosage: 45 IU, TID
     Route: 065
     Dates: end: 20200620
  5. APIDRA [Suspect]
     Active Substance: INSULIN GLULISINE
     Indication: PRODUCT USED FOR UNKNOWN INDICATION
     Dosage: 27 IU, QD
     Route: 065
  6. TRESIBA [Suspect]
     Active Substance: INSULIN DEGLUDEC
     Dosage: 48 IU, QD
     Route: 065
     Dates: start: 20200620

REACTIONS (2)
  - Diabetic ketoacidosis [Unknown]
  - Product dose omission issue [Unknown]
